FAERS Safety Report 11656053 (Version 8)
Quarter: 2017Q1

REPORT INFORMATION
  Report Type: Spontaneous
  Country: US (occurrence: US)
  Receive Date: 20151023
  Receipt Date: 20170119
  Transmission Date: 20170428
  Serious: Yes (Life-Threatening, Hospitalization)
  Sender: FDA-Public Use
  Company Number: US-ACTELION PHARMACEUTICALS US, INC.-A-US2015-113731

PATIENT
  Age: 51 Year
  Sex: Female

DRUGS (8)
  1. ADCIRCA [Concomitant]
     Active Substance: TADALAFIL
  2. VENTAVIS [Suspect]
     Active Substance: ILOPROST
     Dosage: 5 MCG, 6-9X DAILY
     Route: 055
  3. DILTIAZEM. [Concomitant]
     Active Substance: DILTIAZEM
  4. LETAIRIS [Concomitant]
     Active Substance: AMBRISENTAN
  5. VENTAVIS [Suspect]
     Active Substance: ILOPROST
     Dosage: 2.5 MCG, 6X DAILY
     Route: 055
  6. VENTAVIS [Suspect]
     Active Substance: ILOPROST
     Dosage: 2.5 MCG, 4 X/DAILY
     Route: 055
  7. VENTAVIS [Suspect]
     Active Substance: ILOPROST
     Indication: PULMONARY ARTERIAL HYPERTENSION
     Dosage: 2.5 MCG, 6-9X DAILY
     Route: 055
     Dates: start: 20140807, end: 20160802
  8. REVATIO [Concomitant]
     Active Substance: SILDENAFIL CITRATE

REACTIONS (15)
  - Weight decreased [Unknown]
  - Malaise [Unknown]
  - Pulmonary pain [Unknown]
  - Dyspnoea [Unknown]
  - Chest pain [Unknown]
  - Vomiting [Unknown]
  - Oxygen saturation decreased [Recovering/Resolving]
  - Flushing [Unknown]
  - Headache [Unknown]
  - Pulmonary hypertension [Unknown]
  - Dizziness [Unknown]
  - Drug administration error [Unknown]
  - Condition aggravated [Unknown]
  - Dyspnoea exertional [Unknown]
  - Pulmonary arterial hypertension [Unknown]
